FAERS Safety Report 22587019 (Version 1)
Quarter: 2023Q2

REPORT INFORMATION
  Report Type: Spontaneous
  Country: BR (occurrence: BR)
  Receive Date: 20230612
  Receipt Date: 20230612
  Transmission Date: 20230722
  Serious: Yes (Hospitalization, Other)
  Sender: FDA-Public Use
  Company Number: BR-BoehringerIngelheim-2023-BI-242265

PATIENT
  Age: 47 Year
  Sex: Female
  Weight: 79 kg

DRUGS (6)
  1. BEROTEC [Suspect]
     Active Substance: FENOTEROL HYDROBROMIDE
     Indication: Asthma
     Dosage: DROPS: (MORNING, AFTERNOON AND EVENING).
     Route: 055
     Dates: start: 1993, end: 2013
  2. BEROTEC [Suspect]
     Active Substance: FENOTEROL HYDROBROMIDE
     Dosage: FORM OF ADMIN: AEROSOL?1 PUFF 3 TO 4 TIMES A DAY.
     Route: 055
     Dates: start: 20230505, end: 20230513
  3. BEROTEC [Suspect]
     Active Substance: FENOTEROL HYDROBROMIDE
     Dosage: FORM OF ADMIN: AEROSOL?1 PUFF 3 TO 4 TIMES A DAY.
     Route: 055
     Dates: start: 20230530, end: 20230605
  4. ATROVENT [Suspect]
     Active Substance: IPRATROPIUM BROMIDE
     Indication: Asthma
     Dosage: DROPS:  (MORNING, AFTERNOON AND EVENING).
     Route: 055
     Dates: start: 1993, end: 2013
  5. FENOTEROL HYDROBROMIDE\IPRATROPIUM BROMIDE [Suspect]
     Active Substance: FENOTEROL HYDROBROMIDE\IPRATROPIUM BROMIDE
     Indication: Asthma
     Dosage: FORM OF ADMIN: AEROSOL?3 TO 4 TIMES A DAY.
     Route: 055
     Dates: start: 2013, end: 20230529
  6. Prenidisolona [Concomitant]
     Indication: Product used for unknown indication
     Route: 055
     Dates: start: 2013

REACTIONS (6)
  - Myocardial infarction [Recovered/Resolved]
  - Asthma [Not Recovered/Not Resolved]
  - Diabetes mellitus [Not Recovered/Not Resolved]
  - Hypertension [Not Recovered/Not Resolved]
  - Feeling abnormal [Unknown]
  - Drug ineffective [Unknown]

NARRATIVE: CASE EVENT DATE: 20110101
